FAERS Safety Report 9529714 (Version 1)
Quarter: 2013Q3

REPORT INFORMATION
  Report Type: Spontaneous
  Country: US (occurrence: US)
  Receive Date: 20130917
  Receipt Date: 20130917
  Transmission Date: 20140515
  Serious: No
  Sender: FDA-Public Use
  Company Number: US-SANOFI-AVENTIS-2012SA069357

PATIENT
  Age: 41 Year
  Sex: Female
  Weight: 70.3 kg

DRUGS (2)
  1. DDAVP [Suspect]
     Indication: DIABETES INSIPIDUS
     Dosage: HALF TABLET AT LUNCH AND DINNER, 1 TABLET AT BEDTIME
     Route: 048
     Dates: start: 201207
  2. ORAL CONTRACEPTIVE NOS [Concomitant]

REACTIONS (1)
  - Therapeutic response decreased [Unknown]
